FAERS Safety Report 7121429-7 (Version None)
Quarter: 2010Q4

REPORT INFORMATION
  Report Type: 
  Country: None (occurrence: None)
  Receive Date: 20101124
  Receipt Date: 20101112
  Transmission Date: 20110411
  Serious: Yes (Other)
  Sender: FDA-Public Use
  Company Number: PHHY2010CA04335

PATIENT
  Sex: Male

DRUGS (2)
  1. SANDOSTATIN LAR [Suspect]
     Indication: ACROMEGALY
     Dosage: 30 MG, QMO
     Route: 030
     Dates: start: 20080526
  2. SANDOSTATIN LAR [Suspect]
     Dosage: 30 MG, BIW
     Route: 030

REACTIONS (5)
  - HEADACHE [None]
  - HYPOAESTHESIA [None]
  - NASAL CONGESTION [None]
  - NASAL SINUS CANCER [None]
  - POLLAKIURIA [None]
